APPROVED DRUG PRODUCT: PROMETHAZINE HYDROCHLORIDE
Active Ingredient: PROMETHAZINE HYDROCHLORIDE
Strength: 25MG/ML
Dosage Form/Route: INJECTABLE;INJECTION
Application: A040471 | Product #001
Applicant: MYLAN INSTITUTIONAL LLC
Approved: Nov 21, 2002 | RLD: No | RS: No | Type: DISCN